FAERS Safety Report 24175327 (Version 2)
Quarter: 2025Q2

REPORT INFORMATION
  Report Type: Spontaneous
  Country: US (occurrence: US)
  Receive Date: 20240805
  Receipt Date: 20250529
  Transmission Date: 20250717
  Serious: No
  Sender: SCPHARMACEUTICALS
  Company Number: US-SCPHARMACEUTICALS-2024-SCPH-US000270

PATIENT
  Age: 90 Year
  Sex: Female

DRUGS (3)
  1. FUROSCIX [Suspect]
     Active Substance: FUROSEMIDE
     Indication: Cardiac failure congestive
     Route: 058
     Dates: start: 202404
  2. SPIRONOLACTONE AND HYDROCHLOROTHIAZIDE [Concomitant]
     Active Substance: HYDROCHLOROTHIAZIDE\SPIRONOLACTONE
     Indication: Product used for unknown indication
  3. Multivitamin active woman [Concomitant]
     Indication: Product used for unknown indication

REACTIONS (1)
  - Constipation [Unknown]

NARRATIVE: CASE EVENT DATE: 20240507
